FAERS Safety Report 5331840-2 (Version None)
Quarter: 2007Q2

REPORT INFORMATION
  Report Type: 
  Country: None (occurrence: None)
  Receive Date: 20070523
  Receipt Date: 20070510
  Transmission Date: 20071010
  Serious: Yes (Hospitalization, Other)
  Sender: FDA-Public Use
  Company Number: PHBS2007JP06361

PATIENT
  Age: 30 Year
  Sex: Male

DRUGS (5)
  1. DIOVAN [Suspect]
     Indication: HYPERTENSION
     Dosage: 80 MG/DAY
     Route: 048
     Dates: start: 20020401
  2. AMLODIPINE [Suspect]
     Dosage: 5 MG, UNK
     Route: 048
     Dates: end: 20070410
  3. ALDACTAZIDE-A [Suspect]
     Dates: end: 20070410
  4. LASIX [Suspect]
     Indication: HYPERTENSION
  5. CARDENALIN [Suspect]

REACTIONS (3)
  - MUSCLE DISORDER [None]
  - MUSCULOSKELETAL STIFFNESS [None]
  - MYOPATHY [None]
